FAERS Safety Report 4736461-8 (Version None)
Quarter: 2005Q3

REPORT INFORMATION
  Report Type: 
  Country: None (occurrence: None)
  Receive Date: 20050804
  Receipt Date: 20050719
  Transmission Date: 20060218
  Serious: No
  Sender: FDA-Public Use
  Company Number: 190705001/225 AE

PATIENT
  Age: 41 Year
  Sex: Male

DRUGS (2)
  1. TESTIM [Suspect]
     Indication: HYPOGONADISM
     Dosage: 50 MG DAILY TRANSDERMAL
     Route: 062
     Dates: start: 20050425
  2. PREVACID [Concomitant]

REACTIONS (2)
  - DEPRESSION [None]
  - SUICIDAL IDEATION [None]
